FAERS Safety Report 8840535 (Version 2)
Quarter: 2012Q4

REPORT INFORMATION
  Report Type: Report from Study
  Country: US (occurrence: US)
  Receive Date: 20121015
  Receipt Date: 20121026
  Transmission Date: 20130627
  Serious: Yes (Hospitalization)
  Sender: FDA-Public Use
  Company Number: US-PURDUE-USA-2012-0094153

PATIENT
  Sex: Male

DRUGS (2)
  1. OXYCONTIN (NDA 22-272) [Suspect]
     Indication: PAIN
     Dosage: 40 mg, q8h
     Route: 048
  2. OXYCONTIN (NDA 22-272) [Suspect]
     Dosage: 20 mg, q8h

REACTIONS (3)
  - Pneumothorax [Unknown]
  - Pneumonia [Recovered/Resolved]
  - Pain [Not Recovered/Not Resolved]
